FAERS Safety Report 4694828-0 (Version None)
Quarter: 2005Q2

REPORT INFORMATION
  Report Type: 
  Country: None (occurrence: None)
  Receive Date: 20050620
  Receipt Date: 20050607
  Transmission Date: 20051028
  Serious: Yes (Other)
  Sender: FDA-Public Use
  Company Number: 2005SE03385

PATIENT
  Age: 35 Year
  Sex: Male

DRUGS (19)
  1. OMEPRAZOLE [Suspect]
     Dates: start: 20050501
  2. POSACONAZOLE [Suspect]
     Indication: FUNGAL INFECTION
     Route: 048
     Dates: start: 20050513, end: 20050518
  3. POSACONAZOLE [Suspect]
     Route: 048
     Dates: start: 20050531
  4. FLUOXETINE [Suspect]
     Indication: DEPRESSION
     Route: 048
     Dates: start: 20050416, end: 20050518
  5. TRAZODONE [Suspect]
     Indication: DEPRESSION
     Dates: start: 20050515, end: 20050515
  6. ACETAMINOPHEN [Suspect]
     Indication: PYREXIA
     Dosage: PRN
     Route: 042
     Dates: start: 20050503, end: 20050518
  7. AMPHOTERICIN B [Suspect]
     Indication: FUNGAL INFECTION
     Dosage: 6 MG/KG/DAY
     Dates: start: 20050509, end: 20050518
  8. GLEEVEC [Suspect]
     Dates: start: 20050504, end: 20050518
  9. VORICONAZOLE [Concomitant]
  10. CASPOFUNGIN ACETATE [Concomitant]
  11. VINCRISTINE [Concomitant]
     Dates: start: 20050302
  12. VINCRISTINE [Concomitant]
     Dates: start: 20050310
  13. VINCRISTINE [Concomitant]
     Dates: start: 20050404
  14. DAUNORUBICIN HCL [Concomitant]
     Dates: start: 20050302
  15. DAUNORUBICIN HCL [Concomitant]
     Dates: start: 20050310
  16. DAUNORUBICIN HCL [Concomitant]
     Dates: start: 20050404
  17. CYTARABINE [Concomitant]
     Dates: start: 20050302
  18. CYTARABINE [Concomitant]
     Dates: start: 20050404
  19. METHOTREXATE [Concomitant]
     Dates: start: 20050302

REACTIONS (23)
  - ASPARTATE AMINOTRANSFERASE INCREASED [None]
  - BLOOD ALKALINE PHOSPHATASE INCREASED [None]
  - DISCOMFORT [None]
  - EMBOLISM [None]
  - ENDOCARDITIS [None]
  - FALL [None]
  - GAMMA-GLUTAMYLTRANSFERASE INCREASED [None]
  - HEPATIC FUNCTION ABNORMAL [None]
  - HEPATITIS TOXIC [None]
  - JAUNDICE [None]
  - LUNG DISORDER [None]
  - MITRAL VALVE INCOMPETENCE [None]
  - MUCORMYCOSIS [None]
  - MYELOPATHY [None]
  - NAUSEA [None]
  - PHLEBOTHROMBOSIS [None]
  - PLEURAL DISORDER [None]
  - PLEURAL EFFUSION [None]
  - PROTHROMBIN TIME ABNORMAL [None]
  - SKIN DISORDER [None]
  - SPLENIC INFARCTION [None]
  - THROMBOCYTOPENIA [None]
  - THYROID NEOPLASM [None]
